FAERS Safety Report 7575998-3 (Version None)
Quarter: 2011Q2

REPORT INFORMATION
  Report Type: 
  Country: None (occurrence: None)
  Receive Date: 20110628
  Receipt Date: 20110609
  Transmission Date: 20111010
  Serious: Yes (Hospitalization, Other)
  Sender: FDA-Public Use
  Company Number: US-BAYER-201028636NA

PATIENT
  Age: 27 Year
  Sex: Female
  Weight: 54.422 kg

DRUGS (7)
  1. ALIMENTARY TRACT AND METABOLISM [Concomitant]
  2. NYSTATIN [Concomitant]
     Dosage: UNK
     Dates: start: 20090910
  3. YAZ [Suspect]
     Indication: PREMENSTRUAL SYNDROME
     Route: 048
     Dates: start: 20070416
  4. ENZYME PREPARATIONS [Concomitant]
     Dosage: UNK
     Dates: start: 20090910
  5. YASMIN [Suspect]
     Indication: PREMENSTRUAL SYNDROME
     Route: 048
     Dates: start: 20070416
  6. PROBIOTICS [Concomitant]
     Dosage: UNK
     Dates: start: 20090910
  7. LEVONORGESTREL + ETHINYL ESTRADIOL [Concomitant]

REACTIONS (5)
  - NAUSEA [None]
  - CHOLELITHIASIS [None]
  - CHOLECYSTITIS CHRONIC [None]
  - ABDOMINAL PAIN UPPER [None]
  - ABDOMINAL DISTENSION [None]
